FAERS Safety Report 10619196 (Version 1)
Quarter: 2014Q4

REPORT INFORMATION
  Report Type: Spontaneous
  Country: US (occurrence: None)
  Receive Date: 20141126
  Receipt Date: 20141126
  Transmission Date: 20150529
  Serious: Yes (Hospitalization, Other)
  Sender: FDA-Public Use
  Company Number: 2014/079

PATIENT
  Age: 29 Year
  Sex: Male

DRUGS (4)
  1. LEVETIRACETAM (NO PREF. NAME) [Suspect]
     Active Substance: LEVETIRACETAM
     Indication: SEIZURE
  2. MARIJUANA [Suspect]
     Active Substance: CANNABIS SATIVA SUBSP. INDICA TOP
  3. CARBAMAZEPINE. [Suspect]
     Active Substance: CARBAMAZEPINE
     Indication: SEIZURE
  4. VALPROIC ACID (NO PREF. NAME) [Suspect]
     Active Substance: VALPROIC ACID
     Indication: SEIZURE

REACTIONS (25)
  - Seizure [None]
  - Disturbance in attention [None]
  - Psychotic disorder [None]
  - Deja vu [None]
  - Euphoric mood [None]
  - Memory impairment [None]
  - Altered state of consciousness [None]
  - Delusion [None]
  - Aggression [None]
  - Anger [None]
  - Alcohol use [None]
  - Loss of consciousness [None]
  - Homicide [None]
  - No therapeutic response [None]
  - Cognitive disorder [None]
  - Paranoia [None]
  - Agitation [None]
  - Abnormal behaviour [None]
  - Inappropriate affect [None]
  - Mental impairment [None]
  - Disorientation [None]
  - Complex partial seizures [None]
  - Automatism [None]
  - Partial seizures [None]
  - Dyskinesia [None]
